FAERS Safety Report 9827448 (Version 3)
Quarter: 2014Q1

REPORT INFORMATION
  Report Type: Spontaneous
  Country: BR (occurrence: BR)
  Receive Date: 20140117
  Receipt Date: 20140121
  Transmission Date: 20141002
  Serious: Yes (Other)
  Sender: FDA-Public Use
  Company Number: BR-PFIZER INC-2014003355

PATIENT
  Age: 11 Year
  Sex: Male

DRUGS (3)
  1. ZOLOFT [Suspect]
     Indication: THINKING ABNORMAL
     Dosage: HALF TABLET UNSPECIFIED FREQUENCY FOR 10 DAYS
     Route: 048
  2. ZOLOFT [Suspect]
     Indication: OBSESSIVE-COMPULSIVE DISORDER
     Dosage: ONE TABLET UNSPECIFIED FREQUENCY FOR 10 DAYS
     Route: 048
  3. ZOLOFT [Suspect]
     Dosage: ONE TABLET AND A HALF UNSPECIFIED FREQUENCY
     Route: 048
     Dates: start: 20140105

REACTIONS (8)
  - Dyskinesia [Recovering/Resolving]
  - Palpitations [Unknown]
  - Chest pain [Unknown]
  - Tongue movement disturbance [Recovering/Resolving]
  - Arthralgia [Unknown]
  - Pain in extremity [Recovering/Resolving]
  - Blepharospasm [Recovering/Resolving]
  - Off label use [Unknown]
